FAERS Safety Report 8554300-4 (Version None)
Quarter: 2012Q3

REPORT INFORMATION
  Report Type: 
  Country: None (occurrence: None)
  Receive Date: 20120731
  Receipt Date: 20120720
  Transmission Date: 20120928
  Serious: Yes (Other)
  Sender: FDA-Public Use
  Company Number: JP-009507513-2012SP031031

PATIENT

DRUGS (18)
  1. REBETOL [Suspect]
     Dosage: 400 MG, QD
     Route: 048
     Dates: start: 20120417, end: 20120501
  2. REBETOL [Suspect]
     Indication: HEPATITIS C
     Dosage: 600 MG, QD
     Route: 048
     Dates: start: 20120403, end: 20120416
  3. REBETOL [Suspect]
     Dosage: 200 MG, QD
     Route: 048
     Dates: start: 20120501
  4. LOXOPROFEN [Concomitant]
     Indication: PROPHYLAXIS
     Dosage: 60MG/DAY AS NEEDED
     Route: 048
  5. CLOBETASOL PROPIONATE [Concomitant]
     Indication: PRODUCT USED FOR UNKNOWN INDICATION
     Dosage: UNK UNK, PRN
     Route: 065
     Dates: start: 20120412
  6. TELAVIC [Suspect]
     Indication: HEPATITIS C
     Route: 048
     Dates: start: 20120403, end: 20120516
  7. TRICHLORMETHIAZIDE [Concomitant]
     Indication: HYPERTENSION
     Route: 048
  8. ALLEGRA [Concomitant]
     Indication: PRODUCT USED FOR UNKNOWN INDICATION
     Dosage: 120 MG, QD
     Route: 048
     Dates: start: 20120405
  9. PEG-INTRON [Suspect]
     Indication: HEPATITIS C
     Dosage: 1.5MCG/KG/WEEK
     Route: 058
     Dates: start: 20120403
  10. OLMESARTAN MEDOXOMIL [Concomitant]
     Indication: HYPERTENSION
     Dosage: FORMULATION: POR
     Route: 048
  11. OLMESARTAN MEDOXOMIL [Concomitant]
     Route: 048
  12. URINORM [Concomitant]
     Indication: PRODUCT USED FOR UNKNOWN INDICATION
     Dosage: 50 MG, QD
     Route: 048
     Dates: start: 20120510
  13. ANTIVIRAL (UNSPECIFIED) [Suspect]
     Indication: HEPATITIS C
     Dosage: 2250 MG, QD
     Route: 048
     Dates: start: 20120403, end: 20120517
  14. NAQUA [Concomitant]
     Indication: HYPERTENSION
     Dosage: FORMULATION: POR
     Route: 048
  15. LOXOPROFEN [Concomitant]
     Indication: PRODUCT USED FOR UNKNOWN INDICATION
     Dosage: AS NEEDED
     Route: 048
     Dates: start: 20120403
  16. ANTEBATE [Concomitant]
     Indication: PRODUCT USED FOR UNKNOWN INDICATION
     Dosage: UNK UNK, PRN
     Route: 065
     Dates: start: 20120405, end: 20120411
  17. CLOBETASOL PROPIONATE [Concomitant]
     Dosage: PROPER QUANTITY/DAY AS NEEDED
     Route: 061
     Dates: end: 20120704
  18. TELAVIC [Suspect]
     Route: 048
     Dates: start: 20120531, end: 20120626

REACTIONS (1)
  - RASH [None]
